FAERS Safety Report 7763042-4 (Version None)
Quarter: 2011Q3

REPORT INFORMATION
  Report Type: 
  Country: None (occurrence: None)
  Receive Date: 20110920
  Receipt Date: 20110915
  Transmission Date: 20111222
  Serious: Yes (Other)
  Sender: FDA-Public Use
  Company Number: AT-ABBOTT-11P-009-0843934-00

PATIENT
  Sex: Female
  Weight: 79 kg

DRUGS (4)
  1. JODTHYROX [Concomitant]
     Indication: PRODUCT USED FOR UNKNOWN INDICATION
  2. NEUROLEPSIN [Concomitant]
     Indication: PRODUCT USED FOR UNKNOWN INDICATION
  3. METHOTREXATE [Concomitant]
     Indication: PRODUCT USED FOR UNKNOWN INDICATION
     Dates: end: 20110501
  4. HUMIRA [Suspect]
     Indication: RHEUMATOID ARTHRITIS
     Dates: start: 20110308, end: 20110724

REACTIONS (1)
  - URTICARIA [None]
